FAERS Safety Report 17482024 (Version 1)
Quarter: 2020Q1

REPORT INFORMATION
  Report Type: Spontaneous
  Country: RU (occurrence: RU)
  Receive Date: 20200302
  Receipt Date: 20200302
  Transmission Date: 20200409
  Serious: Yes (Other)
  Sender: FDA-Public Use
  Company Number: RU-TEVA-2020-RU-1194240

PATIENT
  Age: 6 Year
  Sex: Male
  Weight: 27 kg

DRUGS (2)
  1. TOPSAVER [Suspect]
     Active Substance: TOPIRAMATE
     Indication: PARTIAL SEIZURES
     Dosage: DAILY DOSE- 150 / 150 MG; SINGLE DOSE - 75 / 75MG
     Route: 048
     Dates: start: 20171005, end: 20171018
  2. TOPSAVER [Suspect]
     Active Substance: TOPIRAMATE
     Dosage: DAILY DOSE- 150 / 150 MG; SINGLE DOSE - 75 / 75MG
     Route: 048
     Dates: start: 20171109, end: 20171109

REACTIONS (3)
  - Generalised tonic-clonic seizure [Recovering/Resolving]
  - Deafness transitory [Recovering/Resolving]
  - Visual acuity reduced [Recovering/Resolving]

NARRATIVE: CASE EVENT DATE: 20171018
